FAERS Safety Report 13853357 (Version 2)
Quarter: 2017Q3

REPORT INFORMATION
  Report Type: Report from Study
  Country: US (occurrence: US)
  Receive Date: 20170809
  Receipt Date: 20170828
  Transmission Date: 20171127
  Serious: Yes (Hospitalization)
  Sender: FDA-Public Use
  Company Number: US-ALEXION PHARMACEUTICALS INC.-A201708531

PATIENT
  Age: 24 Year
  Sex: Female

DRUGS (55)
  1. ECULIZUMAB [Suspect]
     Active Substance: ECULIZUMAB
     Indication: HAEMOLYTIC URAEMIC SYNDROME
     Dosage: 900 MG, QW
     Route: 042
     Dates: start: 20170408, end: 20170427
  2. SODIUM CHLORIDE. [Concomitant]
     Active Substance: SODIUM CHLORIDE
     Indication: PRODUCT USED FOR UNKNOWN INDICATION
     Dosage: 1000 ML, SINGLE BOLUS
     Route: 042
     Dates: start: 20170414, end: 20170414
  3. HEPARIN [Concomitant]
     Active Substance: HEPARIN SODIUM
     Dosage: 2000 UNITS, ONCE INJECTION
     Route: 065
     Dates: start: 20170417, end: 20170417
  4. IMITREX                            /01044802/ [Concomitant]
     Indication: PRODUCT USED FOR UNKNOWN INDICATION
     Dosage: 6 MG, SINGLE
     Route: 065
     Dates: start: 20170412, end: 20170415
  5. MORPHINE [Concomitant]
     Active Substance: MORPHINE
     Indication: PRODUCT USED FOR UNKNOWN INDICATION
     Dosage: 2 MG/ML INJECTION 1 ML
     Route: 065
     Dates: start: 20170411, end: 20170411
  6. PHENERGAN [Concomitant]
     Active Substance: PROMETHAZINE HYDROCHLORIDE
     Indication: PRODUCT USED FOR UNKNOWN INDICATION
     Dosage: 12.5 MG IN SODIUM CHLORIDE 0.9 %,10 ML SYRINGE SINGLE
     Route: 065
     Dates: start: 20170411, end: 20170411
  7. ZOFRAN [Concomitant]
     Active Substance: ONDANSETRON HYDROCHLORIDE
     Dosage: 4 MG, Q8H PRN TABLET OR INJECTION
     Route: 065
     Dates: start: 20170417, end: 20170418
  8. TYLENOL [Concomitant]
     Active Substance: ACETAMINOPHEN
     Dosage: 325 MG, SINGLE
     Route: 065
     Dates: start: 20170408, end: 20170408
  9. VANCOCIN [Concomitant]
     Active Substance: VANCOMYCIN HYDROCHLORIDE
     Dosage: 750 MG, SINGLE
     Route: 042
     Dates: start: 20170408, end: 20170408
  10. PROVENTIL [Concomitant]
     Active Substance: ALBUTEROL
     Indication: PRODUCT USED FOR UNKNOWN INDICATION
     Dosage: 2.5 MG, Q4H PRN
     Dates: start: 20170407, end: 20170415
  11. SODIUM CHLORIDE. [Concomitant]
     Active Substance: SODIUM CHLORIDE
     Dosage: 1000 ML, SINGLE BOLUS
     Route: 042
     Dates: start: 20170412, end: 20170412
  12. HEPARIN [Concomitant]
     Active Substance: HEPARIN SODIUM
     Indication: PRODUCT USED FOR UNKNOWN INDICATION
     Dosage: 2000 IU, SINGLE
     Route: 065
     Dates: start: 20170414, end: 20170414
  13. NORCO [Concomitant]
     Active Substance: ACETAMINOPHEN\HYDROCODONE BITARTRATE
     Indication: PRODUCT USED FOR UNKNOWN INDICATION
     Dosage: 5-325 MG PER TABLET. 1 TABLET Q6H PRN
     Route: 065
     Dates: start: 20170412, end: 20170415
  14. NORCO [Concomitant]
     Active Substance: ACETAMINOPHEN\HYDROCODONE BITARTRATE
     Dosage: 5-325 MG PER TABLET. 1 TABLET Q6H PRN
     Route: 065
     Dates: start: 20170417, end: 20170418
  15. NARCAN [Concomitant]
     Active Substance: NALOXONE HYDROCHLORIDE
     Dosage: 0.2 MG, SINGLE PRN
     Route: 065
     Dates: start: 20170412, end: 20170415
  16. ZOFRAN [Concomitant]
     Active Substance: ONDANSETRON HYDROCHLORIDE
     Dosage: 4 MG, Q8H PRN
     Route: 065
     Dates: start: 20170407, end: 20170410
  17. TYLENOL [Concomitant]
     Active Substance: ACETAMINOPHEN
     Indication: PRODUCT USED FOR UNKNOWN INDICATION
     Dosage: 650 MG, SINGLE
     Route: 065
     Dates: start: 20170408, end: 20170408
  18. ADRENALIN                          /00003901/ [Concomitant]
     Active Substance: EPINEPHRINE
     Indication: PRODUCT USED FOR UNKNOWN INDICATION
     Dosage: 1MG/ML INJECTION 0.5 MG, SINGLE PRN
     Route: 065
     Dates: start: 20170408, end: 20170415
  19. CIPRO [Concomitant]
     Active Substance: CIPROFLOXACIN HYDROCHLORIDE
     Dosage: 500 MG, DAILY 0600
     Route: 065
     Dates: start: 20170417, end: 20170418
  20. SODIUM CHLORIDE. [Concomitant]
     Active Substance: SODIUM CHLORIDE
     Dosage: 1000 ML, SINGLE
     Route: 065
     Dates: start: 20170408, end: 20170415
  21. COZAAR [Concomitant]
     Active Substance: LOSARTAN POTASSIUM
     Indication: PRODUCT USED FOR UNKNOWN INDICATION
     Dosage: 25 MG, QD
     Route: 065
     Dates: start: 20170413, end: 20170415
  22. DILAUDID [Concomitant]
     Active Substance: HYDROMORPHONE HYDROCHLORIDE
     Indication: PRODUCT USED FOR UNKNOWN INDICATION
     Dosage: 0.5 MG INJECTION, SINGLE
     Route: 065
     Dates: start: 20170411, end: 20170412
  23. XYLOCAINE [Concomitant]
     Active Substance: LIDOCAINE HYDROCHLORIDE
     Indication: PRODUCT USED FOR UNKNOWN INDICATION
     Dosage: 20 MG/ML (2%) INJECTION 5ML SINGLE
     Route: 065
     Dates: start: 20170411, end: 20170415
  24. PHENERGAN [Concomitant]
     Active Substance: PROMETHAZINE HYDROCHLORIDE
     Dosage: 25 MG, Q6H PRN
     Route: 065
     Dates: start: 20170410, end: 20170415
  25. ZOFRAN [Concomitant]
     Active Substance: ONDANSETRON HYDROCHLORIDE
     Indication: PRODUCT USED FOR UNKNOWN INDICATION
     Dosage: 4 MG, SINGLE
     Route: 065
     Dates: start: 20170410, end: 20170410
  26. BENADRYL [Concomitant]
     Active Substance: DIPHENHYDRAMINE HYDROCHLORIDE
     Indication: PRODUCT USED FOR UNKNOWN INDICATION
     Dosage: 25 MG, SINGLE
     Route: 065
     Dates: start: 20170408, end: 20170408
  27. CIPRO [Concomitant]
     Active Substance: CIPROFLOXACIN HYDROCHLORIDE
     Indication: PRODUCT USED FOR UNKNOWN INDICATION
     Dosage: 500 MG, QD AT 0600
     Route: 065
     Dates: start: 20170408, end: 20170415
  28. VANCOCIN [Concomitant]
     Active Substance: VANCOMYCIN HYDROCHLORIDE
     Indication: PRODUCT USED FOR UNKNOWN INDICATION
     Dosage: 1000 MG, SINGLE
     Route: 042
     Dates: start: 20170408, end: 20170408
  29. IMITREX                            /01044802/ [Concomitant]
     Dosage: 6 MG, SINGLE INJECTION
     Route: 065
     Dates: start: 20170417, end: 20170418
  30. NARCAN [Concomitant]
     Active Substance: NALOXONE HYDROCHLORIDE
     Indication: PRODUCT USED FOR UNKNOWN INDICATION
     Dosage: 0.2 MG, SINGLE
     Route: 065
     Dates: start: 20170410, end: 20170410
  31. PHENERGAN [Concomitant]
     Active Substance: PROMETHAZINE HYDROCHLORIDE
     Dosage: 12.5 MG, SINGLE
     Route: 030
     Dates: start: 20170417, end: 20170417
  32. SOLU-CORTEF [Concomitant]
     Active Substance: HYDROCORTISONE SODIUM SUCCINATE
     Indication: PRODUCT USED FOR UNKNOWN INDICATION
     Dosage: 100 MG, SINGLE PRN
     Route: 065
     Dates: start: 20170408, end: 20170415
  33. SODIUM CHLORIDE. [Concomitant]
     Active Substance: SODIUM CHLORIDE
     Dosage: CONTINUOUS
     Route: 065
     Dates: start: 20170408, end: 20170408
  34. ATIVAN [Concomitant]
     Active Substance: LORAZEPAM
     Indication: PRODUCT USED FOR UNKNOWN INDICATION
     Dosage: 1 MG, SINGLE INJECTION
     Route: 065
     Dates: start: 20170411, end: 20170411
  35. ZOSYN [Concomitant]
     Active Substance: PIPERACILLIN SODIUM\TAZOBACTAM SODIUM
     Indication: PRODUCT USED FOR UNKNOWN INDICATION
     Dosage: 2.25 G, Q8H
     Route: 042
     Dates: start: 20170408, end: 20170408
  36. SODIUM CHLORIDE. [Concomitant]
     Active Substance: SODIUM CHLORIDE
     Dosage: 10 ML Q 12H FLUSH AND PRN
     Route: 065
     Dates: start: 20170417, end: 20170418
  37. MORPHINE [Concomitant]
     Active Substance: MORPHINE
     Dosage: 1 MG, Q4H PRN
     Route: 065
     Dates: start: 20170410, end: 20170412
  38. PHENERGAN [Concomitant]
     Active Substance: PROMETHAZINE HYDROCHLORIDE
     Dosage: 12.5 MG, Q6H PRN
     Route: 065
     Dates: start: 20170407, end: 20170408
  39. TYLENOL [Concomitant]
     Active Substance: ACETAMINOPHEN
     Dosage: 650 MG, Q6H PRN
     Route: 065
     Dates: start: 20170408, end: 20170415
  40. HUMAN ALBUMIN [Concomitant]
     Active Substance: ALBUMIN HUMAN
     Indication: PRODUCT USED FOR UNKNOWN INDICATION
     Dosage: 25 % BOTTLE 50 ML, Q4H PRN
     Route: 065
  41. LEVAQUIN [Concomitant]
     Active Substance: LEVOFLOXACIN
     Indication: PRODUCT USED FOR UNKNOWN INDICATION
     Dosage: 500 MG, SINGLE, AT 0600
     Route: 065
     Dates: start: 20170408, end: 20170408
  42. ECULIZUMAB [Suspect]
     Active Substance: ECULIZUMAB
     Dosage: 1200 MG, Q2W
     Route: 042
     Dates: start: 20170504
  43. SODIUM CHLORIDE. [Concomitant]
     Active Substance: SODIUM CHLORIDE
     Dosage: 250 ML, SINGLE PRN
     Route: 065
     Dates: start: 20170408, end: 20170415
  44. SODIUM CHLORIDE. [Concomitant]
     Active Substance: SODIUM CHLORIDE
     Dosage: 10 ML, Q12 H FLUSH PRN
     Dates: start: 20170407, end: 20170415
  45. COZAAR [Concomitant]
     Active Substance: LOSARTAN POTASSIUM
     Dosage: 25 MG, QD
     Route: 065
     Dates: start: 20170417, end: 20170418
  46. IMITREX                            /01044802/ [Concomitant]
     Dosage: 50 MG, SINGLE
     Route: 065
     Dates: start: 20170412, end: 20170412
  47. DILAUDID [Concomitant]
     Active Substance: HYDROMORPHONE HYDROCHLORIDE
     Dosage: 0.5 MG INJECTION, SINGLE
     Route: 065
     Dates: start: 20170411, end: 20170411
  48. PHENERGAN [Concomitant]
     Active Substance: PROMETHAZINE HYDROCHLORIDE
     Dosage: 12.5 MG, Q6H PRN
     Route: 065
     Dates: start: 20170407, end: 20170407
  49. ULTRAM [Concomitant]
     Active Substance: TRAMADOL HYDROCHLORIDE
     Dosage: 50 MG, SINGLE
     Route: 065
     Dates: start: 20170417, end: 20170418
  50. SODIUM CHLORIDE. [Concomitant]
     Active Substance: SODIUM CHLORIDE
     Dosage: 1000 ML, SINGLE
     Route: 065
     Dates: start: 20170417, end: 20170417
  51. HEPARIN [Concomitant]
     Active Substance: HEPARIN SODIUM
     Dosage: 4000 UNITS, ONCE
     Route: 065
     Dates: start: 20170408, end: 20170415
  52. NARCAN [Concomitant]
     Active Substance: NALOXONE HYDROCHLORIDE
     Dosage: 0.2 MG, SINGLE PRN
     Route: 065
     Dates: start: 20170417, end: 20170418
  53. ULTRAM [Concomitant]
     Active Substance: TRAMADOL HYDROCHLORIDE
     Indication: PRODUCT USED FOR UNKNOWN INDICATION
     Dosage: 50 MG, SINGLE
     Route: 065
     Dates: start: 20170410, end: 20170410
  54. TYLENOL [Concomitant]
     Active Substance: ACETAMINOPHEN
     Dosage: 650 MG, Q6H PRN
     Route: 065
     Dates: start: 20170417, end: 20170418
  55. ATROVENT [Concomitant]
     Active Substance: IPRATROPIUM BROMIDE
     Indication: PRODUCT USED FOR UNKNOWN INDICATION
     Dosage: 0.5 MG, Q4H PRN
     Route: 065
     Dates: start: 20170407, end: 20170415

REACTIONS (1)
  - Chest pain [Recovered/Resolved]

NARRATIVE: CASE EVENT DATE: 20170417
